FAERS Safety Report 6680097-9 (Version None)
Quarter: 2010Q2

REPORT INFORMATION
  Report Type: 
  Country: None (occurrence: None)
  Receive Date: 20100413
  Receipt Date: 20100401
  Transmission Date: 20101027
  Serious: Yes (Hospitalization)
  Sender: FDA-Public Use
  Company Number: PHHY2010US20796

PATIENT
  Sex: Male

DRUGS (2)
  1. GLEEVEC [Suspect]
     Indication: NEOPLASM MALIGNANT
     Dosage: 400 MG, QD
     Dates: start: 20100318
  2. GLEEVEC [Suspect]
     Dosage: 400 MG, QD
     Dates: start: 20100328

REACTIONS (2)
  - STENT PLACEMENT [None]
  - URETERAL DISORDER [None]
